FAERS Safety Report 8014944-5 (Version None)
Quarter: 2011Q4

REPORT INFORMATION
  Report Type: 
  Country: None (occurrence: None)
  Receive Date: 20111229
  Receipt Date: 20111219
  Transmission Date: 20120403
  Serious: Yes (Hospitalization, Other)
  Sender: FDA-Public Use
  Company Number: JP-ROCHE-636943

PATIENT
  Sex: Female

DRUGS (10)
  1. ACTEMRA [Suspect]
     Route: 041
     Dates: start: 20090525, end: 20090525
  2. VOLTAREN [Concomitant]
     Indication: RHEUMATOID ARTHRITIS
     Dosage: FORM: INTERCALATING AGENT, SUPPOSITORIAE RECTALE
     Route: 054
  3. ACTEMRA [Suspect]
     Route: 041
     Dates: start: 20090420, end: 20090420
  4. PREDNISOLONE [Concomitant]
     Indication: RHEUMATOID ARTHRITIS
     Dosage: FORM: ORAL FORMULATION NOS
     Route: 048
  5. VITAMEDIN [Concomitant]
     Route: 048
  6. ACTEMRA [Suspect]
     Indication: RHEUMATOID ARTHRITIS
     Route: 041
     Dates: start: 20090323, end: 20090323
  7. MECOBALAMIN [Concomitant]
     Indication: NEUROPATHY PERIPHERAL
     Dosage: DRUG: RETICOLAN
     Route: 048
  8. MOBIC [Concomitant]
     Indication: RHEUMATOID ARTHRITIS
     Route: 048
  9. PREDNISOLONE [Concomitant]
  10. PROGRAF [Concomitant]
     Indication: RHEUMATOID ARTHRITIS
     Route: 048

REACTIONS (4)
  - PERICARDITIS RHEUMATIC [None]
  - ANGINA PECTORIS [None]
  - HYPERSENSITIVITY [None]
  - SHOCK [None]
